FAERS Safety Report 5284519-X (Version None)
Quarter: 2007Q2

REPORT INFORMATION
  Report Type: 
  Country: None (occurrence: None)
  Receive Date: 20070403
  Receipt Date: 20070328
  Transmission Date: 20071010
  Serious: Yes (Other)
  Sender: FDA-Public Use
  Company Number: 2007-001704

PATIENT
  Age: 27 Year
  Sex: Female
  Weight: 99.8 kg

DRUGS (5)
  1. FLOLAN [Suspect]
     Dosage: 32NGKM UNKNOWN
     Route: 042
     Dates: start: 20030801
  2. LASIX [Concomitant]
     Dosage: 20MG PER DAY
     Route: 048
  3. DIGOXIN [Concomitant]
     Dosage: .25MG PER DAY
     Route: 048
  4. COUMADIN [Concomitant]
     Dosage: 2MG PER DAY
     Route: 048
  5. DIOVAN [Concomitant]
     Dosage: 80MG TWICE PER DAY
     Route: 048

REACTIONS (2)
  - CATHETER RELATED COMPLICATION [None]
  - PHARMACEUTICAL PRODUCT COMPLAINT [None]
